FAERS Safety Report 8743179 (Version 2)
Quarter: 2012Q4

REPORT INFORMATION
  Report Type: Spontaneous
  Country: BE (occurrence: None)
  Receive Date: 20120723
  Receipt Date: 20120820
  Transmission Date: 20130627
  Serious: Yes (Hospitalization, Other)
  Sender: FDA-Public Use
  Company Number: 2012032860

PATIENT
  Age: 79 Year
  Sex: Male

DRUGS (17)
  1. PRIVIGEN [Suspect]
     Indication: AUTOIMMUNE APLASTIC ANAEMIA
     Dosage: 0.4G/KG FOR 5 DAYS
     Route: 042
     Dates: start: 20120618, end: 20120619
  2. PRIVIGEN [Suspect]
     Indication: CHRONIC MYELOID LEUKAEMIA
     Dosage: 0.4G/KG FOR 5 DAYS
     Route: 042
     Dates: start: 20120618, end: 20120619
  3. PRIVIGEN [Suspect]
     Indication: AUTOIMMUNE APLASTIC ANAEMIA
     Dosage: 0.4g/kg for 5 days
     Route: 042
     Dates: start: 20120620, end: 20120620
  4. PRIVIGEN [Suspect]
     Indication: CHRONIC MYELOID LEUKAEMIA
     Dosage: 0.4g/kg for 5 days
     Route: 042
     Dates: start: 20120620, end: 20120620
  5. PRIVIGEN [Suspect]
     Indication: AUTOIMMUNE APLASTIC ANAEMIA
     Dosage: 0.4g/kg for 5 days
     Route: 042
     Dates: start: 20120621, end: 20120621
  6. PRIVIGEN [Suspect]
     Indication: CHRONIC MYELOID LEUKAEMIA
     Dosage: 0.4g/kg for 5 days
     Route: 042
     Dates: start: 20120621, end: 20120621
  7. PRIVIGEN [Suspect]
     Indication: AUTOIMMUNE APLASTIC ANAEMIA
     Dosage: 0.4g/kg for 5 days
     Route: 042
     Dates: start: 20120622, end: 20120622
  8. PRIVIGEN [Suspect]
     Indication: CHRONIC MYELOID LEUKAEMIA
     Dosage: 0.4g/kg for 5 days
     Route: 042
     Dates: start: 20120622, end: 20120622
  9. LASIX /00032601/ (FUROSEMIDE) [Concomitant]
  10. TERAZOSIN (TERAZOSIN) [Concomitant]
  11. DUOVENT (DUOVENT) [Concomitant]
  12. MOXON (MOXONIDINE) [Concomitant]
  13. PANTOPRAZOLE (PANTOPRAZOLE) [Concomitant]
  14. CARDIOASPIRIN (ACETYLSALICYLIC ACID) [Concomitant]
  15. CAPTOPRIL (CAPTOPRIL) [Concomitant]
  16. CLEXANE (ENOXAPARIN SODIUM) [Concomitant]
  17. CEFEPIME (CEFEPIME) [Concomitant]

REACTIONS (4)
  - Anti-erythrocyte antibody positive [None]
  - Off label use [None]
  - Chills [None]
  - Transfusion reaction [None]
